FAERS Safety Report 8606744-X (Version None)
Quarter: 2012Q3

REPORT INFORMATION
  Report Type: 
  Country: None (occurrence: None)
  Receive Date: 20120820
  Receipt Date: 20120807
  Transmission Date: 20120928
  Serious: Yes (Other)
  Sender: FDA-Public Use
  Company Number: HU-FRI-1000037909

PATIENT
  Age: 58 Year
  Sex: Female

DRUGS (15)
  1. ROFLUMILAST [Suspect]
     Indication: CHRONIC OBSTRUCTIVE PULMONARY DISEASE
     Route: 048
     Dates: start: 20120627
  2. METHYLPREDNISOLONE [Concomitant]
     Dosage: 4 MG
     Dates: start: 20120708
  3. TRIMETAZIDINE HYDROCHLORIDE [Concomitant]
     Indication: CORONARY ARTERY DISEASE
  4. MONTELUKAST [Concomitant]
     Indication: ASTHMA
  5. OXYGEN [Concomitant]
  6. ACETYLCYSTEINE [Concomitant]
     Indication: ASTHMA
  7. BERODUAL [Concomitant]
     Indication: ASTHMA
  8. THEOPHYLLINE [Suspect]
     Indication: CHRONIC OBSTRUCTIVE PULMONARY DISEASE
     Route: 042
     Dates: end: 20120706
  9. METHYLPREDNISOLONE [Concomitant]
     Dosage: 80 MG
     Dates: start: 20120601
  10. MULTI-VITAMINS [Concomitant]
  11. UNSPECIFIED MEDICATION [Concomitant]
     Indication: HYPERTENSION
  12. UNSPECIFIED ANTIACID MEDICATION [Concomitant]
     Indication: GASTROOESOPHAGEAL REFLUX DISEASE
  13. UNSPECIFIED ANTIACID MEDICATION [Concomitant]
  14. SYMBICORT [Concomitant]
     Indication: ASTHMA
  15. MAGNE B6 [Concomitant]

REACTIONS (8)
  - DEPRESSION [None]
  - HEART RATE INCREASED [None]
  - MUSCULAR WEAKNESS [None]
  - HEADACHE [None]
  - INSOMNIA [None]
  - WEIGHT DECREASED [None]
  - MEDICATION ERROR [None]
  - DECREASED APPETITE [None]
